FAERS Safety Report 12596772 (Version 1)
Quarter: 2016Q3

REPORT INFORMATION
  Report Type: Spontaneous
  Country: US (occurrence: US)
  Receive Date: 20160727
  Receipt Date: 20160727
  Transmission Date: 20161109
  Serious: No
  Sender: FDA-Public Use
  Company Number: US-TEVA-679079ACC

PATIENT
  Sex: Female
  Weight: 52.66 kg

DRUGS (3)
  1. BIOTIN [Concomitant]
     Active Substance: BIOTIN
  2. PLAN B ONE-STEP [Suspect]
     Active Substance: LEVONORGESTREL
     Indication: POST COITAL CONTRACEPTION
     Dates: start: 20160709, end: 20160709
  3. IRON FERROUS SULFATE [Concomitant]
     Indication: BLOOD IRON DECREASED
     Dosage: ONCE A DAY

REACTIONS (2)
  - Vaginal haemorrhage [Not Recovered/Not Resolved]
  - Dysmenorrhoea [Not Recovered/Not Resolved]

NARRATIVE: CASE EVENT DATE: 20160715
